FAERS Safety Report 23834967 (Version 3)
Quarter: 2024Q3

REPORT INFORMATION
  Report Type: Spontaneous
  Country: CA (occurrence: CA)
  Receive Date: 20240509
  Receipt Date: 20240708
  Transmission Date: 20241016
  Serious: Yes (Other)
  Sender: CELLTRION
  Company Number: CA-PFIZER INC-202400056776

PATIENT

DRUGS (10)
  1. INFLECTRA [Suspect]
     Active Substance: INFLIXIMAB-DYYB
     Indication: Crohn^s disease
     Dosage: 5 MG/KG, INDUCTION WEEKS 0, 2, 6 THEN EVERY 8 WEEKS
     Route: 042
     Dates: start: 20221208, end: 20230322
  2. INFLECTRA [Suspect]
     Active Substance: INFLIXIMAB-DYYB
     Dosage: 7500 UG/KG, EVERY 8 WEEKS
     Route: 042
     Dates: start: 20230515, end: 20230710
  3. INFLECTRA [Suspect]
     Active Substance: INFLIXIMAB-DYYB
     Dosage: 500 MG, EVERY 8 WEEKS
     Route: 042
     Dates: start: 20230906
  4. INFLECTRA [Suspect]
     Active Substance: INFLIXIMAB-DYYB
     Dosage: 500 MG, EVERY 8 WEEKS
     Route: 042
     Dates: start: 20231227
  5. INFLECTRA [Suspect]
     Active Substance: INFLIXIMAB-DYYB
     Dosage: 10 MG/KG,  EVERY 4 WEEKS(REINDUCTION)(600MG, WEEK 0 REINDUCTION DOSE)
     Route: 042
     Dates: start: 20240314
  6. INFLECTRA [Suspect]
     Active Substance: INFLIXIMAB-DYYB
     Dosage: 10 MG/KG,  EVERY 4 WEEKS(REINDUCTION)(700MG, 6 WEEKS AND 5 DAYS (WEEK 2-REINDUCTION))
     Route: 042
     Dates: start: 20240430
  7. INFLECTRA [Suspect]
     Active Substance: INFLIXIMAB-DYYB
     Dosage: 10 MG/KG,  EVERY 4 WEEKS(REINDUCTION)(700MG, 6 WEEKS AND 5 DAYS (WEEK 2-REINDUCTION))
     Route: 042
     Dates: start: 20240430
  8. INFLECTRA [Suspect]
     Active Substance: INFLIXIMAB-DYYB
     Dosage: 10 MG/KG,  EVERY 4 WEEKS(REINDUCTION)(700MG, 6 WEEKS AND 5 DAYS (WEEK 2-REINDUCTION))
     Route: 042
     Dates: start: 20240430
  9. CORTISONE [Concomitant]
     Active Substance: CORTISONE
     Dosage: 25 MG, UNKNOWN FREQUENCY
     Route: 065
  10. SEROQUEL [Concomitant]
     Active Substance: QUETIAPINE FUMARATE
     Dosage: 450 MG

REACTIONS (11)
  - Bipolar disorder [Unknown]
  - Pyrexia [Recovered/Resolved]
  - Condition aggravated [Recovering/Resolving]
  - Proctalgia [Not Recovered/Not Resolved]
  - Anal fissure [Recovered/Resolved]
  - Anal fistula [Unknown]
  - Weight increased [Not Recovered/Not Resolved]
  - Increased appetite [Not Recovered/Not Resolved]
  - Illness [Recovered/Resolved]
  - Off label use [Unknown]
  - Inappropriate schedule of product administration [Unknown]

NARRATIVE: CASE EVENT DATE: 20240101
